FAERS Safety Report 6608780-1 (Version None)
Quarter: 2010Q1

REPORT INFORMATION
  Report Type: 
  Country: None (occurrence: None)
  Receive Date: 20100301
  Receipt Date: 20100218
  Transmission Date: 20100710
  Serious: No
  Sender: FDA-Public Use
  Company Number: US-B.I. PHARMACEUTICALS,INC./RIDGEFIELD-2010-BP-02049BP

PATIENT
  Age: 47 Year
  Sex: Female

DRUGS (2)
  1. VIRAMUNE [Suspect]
     Indication: HIV INFECTION
     Dates: start: 20070101
  2. TRUVADA [Suspect]
     Indication: HIV INFECTION
     Dates: start: 20070101

REACTIONS (1)
  - RASH [None]
